APPROVED DRUG PRODUCT: TELEPAQUE
Active Ingredient: IOPANOIC ACID
Strength: 500MG
Dosage Form/Route: TABLET;ORAL
Application: N008032 | Product #001
Applicant: GE HEALTHCARE
Approved: Approved Prior to Jan 1, 1982 | RLD: No | RS: No | Type: DISCN